FAERS Safety Report 5077414-2 (Version None)
Quarter: 2006Q3

REPORT INFORMATION
  Report Type: 
  Country: None (occurrence: None)
  Receive Date: 20060810
  Receipt Date: 20060216
  Transmission Date: 20061208
  Serious: No
  Sender: FDA-Public Use
  Company Number: US-GLAXOSMITHKLINE-A0594009A

PATIENT
  Age: 48 Year
  Sex: Female

DRUGS (2)
  1. PAXIL [Suspect]
     Dosage: 10MG PER DAY
     Route: 048
     Dates: start: 20060213, end: 20060213
  2. NO CONCURRENT MEDICATION [Concomitant]

REACTIONS (7)
  - DIZZINESS [None]
  - FEAR [None]
  - HOT FLUSH [None]
  - HYPERHIDROSIS [None]
  - MIDDLE INSOMNIA [None]
  - NAUSEA [None]
  - NERVOUSNESS [None]
